FAERS Safety Report 13219936 (Version 2)
Quarter: 2017Q1

REPORT INFORMATION
  Report Type: Spontaneous
  Country: CN (occurrence: CN)
  Receive Date: 20170211
  Receipt Date: 20170213
  Transmission Date: 20170428
  Serious: No
  Sender: FDA-Public Use
  Company Number: CN-009507513-1702CHN003795

PATIENT
  Age: 35 Year
  Sex: Female

DRUGS (1)
  1. MARVELON [Suspect]
     Active Substance: DESOGESTREL\ETHINYL ESTRADIOL
     Indication: OVARIAN REPAIR
     Route: 048

REACTIONS (4)
  - Drug dose omission [Unknown]
  - Drug prescribing error [Unknown]
  - Product use issue [Unknown]
  - Abnormal withdrawal bleeding [Unknown]
